FAERS Safety Report 6531550-X (Version None)
Quarter: 2010Q1

REPORT INFORMATION
  Report Type: 
  Country: None (occurrence: None)
  Receive Date: 20100108
  Receipt Date: 20100104
  Transmission Date: 20100710
  Serious: Yes (Other)
  Sender: FDA-Public Use
  Company Number: US-SP-2010-00021

PATIENT
  Age: 66 Year
  Sex: Male

DRUGS (4)
  1. BCG  THERAPEUTICS [Suspect]
     Indication: BLADDER CANCER
     Dosage: MAINTENANCE 2 DOSING
     Route: 043
     Dates: start: 20030801, end: 20060401
  2. BCG  THERAPEUTICS [Suspect]
     Dosage: MAINTENANCE 2 DOSING
     Route: 043
     Dates: start: 20030801, end: 20060401
  3. BCG  THERAPEUTICS [Suspect]
     Dosage: MAINTENANCE 2 DOSING
     Route: 043
     Dates: start: 20030801, end: 20060401
  4. ASPIRIN [Concomitant]

REACTIONS (10)
  - CHRONIC GRANULOMATOUS DISEASE [None]
  - COUGH [None]
  - CUTANEOUS TUBERCULOSIS [None]
  - ERYTHEMA [None]
  - HAEMATURIA [None]
  - INFLUENZA LIKE ILLNESS [None]
  - LUNG INFILTRATION [None]
  - MICTURITION URGENCY [None]
  - PROSTATIC SPECIFIC ANTIGEN INCREASED [None]
  - RESIDUAL URINE [None]
